FAERS Safety Report 25370085 (Version 1)
Quarter: 2025Q2

REPORT INFORMATION
  Report Type: Report from Study
  Country: US (occurrence: US)
  Receive Date: 20250528
  Receipt Date: 20250528
  Transmission Date: 20250717
  Serious: Yes (Hospitalization, Other)
  Sender: MALLINCKRODT
  Company Number: US-MALLINCKRODT-MNK202502425

PATIENT
  Sex: Female

DRUGS (2)
  1. CORTICOTROPIN [Suspect]
     Active Substance: CORTICOTROPIN
     Indication: Nephrotic syndrome
  2. CORTICOTROPIN [Suspect]
     Active Substance: CORTICOTROPIN
     Indication: Proteinuria

REACTIONS (8)
  - Contusion [Unknown]
  - Limb injury [Unknown]
  - Poor peripheral circulation [Unknown]
  - Immunodeficiency [Unknown]
  - Thrombosis [Unknown]
  - Localised infection [Recovering/Resolving]
  - Proteinuria [Unknown]
  - Circumstance or information capable of leading to medication error [Unknown]
